FAERS Safety Report 8883663 (Version 3)
Quarter: 2012Q4

REPORT INFORMATION
  Report Type: 
  Country: CO (occurrence: CO)
  Receive Date: 20121102
  Receipt Date: 20121212
  Transmission Date: 20130627
  Serious: Yes (Hospitalization)
  Sender: FDA-Public Use
  Company Number: CO-ELI_LILLY_AND_COMPANY-CO201210007466

PATIENT
  Age: 54 Year
  Sex: Female

DRUGS (14)
  1. HUMALOG LISPRO [Suspect]
     Indication: TYPE 2 DIABETES MELLITUS
     Dosage: 8 DF, UNK
     Dates: start: 20121008
  2. HUMALOG LISPRO [Suspect]
     Dosage: 10 DF, bid
  3. ASPIRIN [Concomitant]
  4. INSULIN NPH                        /01223208/ [Concomitant]
  5. BYETTA [Concomitant]
     Indication: TYPE 2 DIABETES MELLITUS
     Dosage: 5 ug, bid
     Route: 058
     Dates: start: 20120926
  6. BYETTA [Concomitant]
     Dosage: 10 ug, bid
     Route: 058
     Dates: start: 20121106
  7. ORLISTAT [Concomitant]
  8. ENALAPRIL [Concomitant]
  9. OMEPRAZOLE [Concomitant]
  10. CALCIUM [Concomitant]
  11. FOLIC ACID [Concomitant]
  12. TRAZODONE [Concomitant]
  13. CICLOSPORIN [Concomitant]
  14. PREDNISOLONE [Concomitant]

REACTIONS (2)
  - Vomiting [Recovering/Resolving]
  - Diarrhoea [Recovering/Resolving]
